FAERS Safety Report 7911435-4 (Version None)
Quarter: 2011Q4

REPORT INFORMATION
  Report Type: 
  Country: None (occurrence: None)
  Receive Date: 20111114
  Receipt Date: 20111109
  Transmission Date: 20120403
  Serious: Yes (Death, Other)
  Sender: FDA-Public Use
  Company Number: US-ASTELLAS-2011US007464

PATIENT
  Sex: Female
  Weight: 79 kg

DRUGS (1)
  1. PROGRAF [Suspect]
     Indication: LIVER TRANSPLANT
     Dosage: 2 MG, BID
     Route: 048
     Dates: start: 20080101, end: 20110411

REACTIONS (3)
  - SURGERY [None]
  - DEATH [None]
  - POST PROCEDURAL COMPLICATION [None]
